FAERS Safety Report 23131862 (Version 1)
Quarter: 2023Q4

REPORT INFORMATION
  Report Type: Spontaneous
  Country: CN (occurrence: CN)
  Receive Date: 20231101
  Receipt Date: 20231101
  Transmission Date: 20240110
  Serious: Yes (Hospitalization, Other)
  Sender: FDA-Public Use
  Company Number: CN-ABBVIE-5474731

PATIENT
  Age: 48 Year
  Sex: Male

DRUGS (2)
  1. UPADACITINIB [Suspect]
     Active Substance: UPADACITINIB
     Indication: Crohn^s disease
     Dosage: LAST ADMIN DATE : 2023
     Route: 048
     Dates: start: 20230901
  2. USTEKINUMAB [Concomitant]
     Active Substance: USTEKINUMAB
     Indication: Crohn^s disease
     Route: 065

REACTIONS (3)
  - Cerebral infarction [Unknown]
  - Lacunar infarction [Unknown]
  - Demyelination [Unknown]

NARRATIVE: CASE EVENT DATE: 20230101
